FAERS Safety Report 8231234-6 (Version None)
Quarter: 2012Q1

REPORT INFORMATION
  Report Type: 
  Country: None (occurrence: None)
  Receive Date: 20120323
  Receipt Date: 20120312
  Transmission Date: 20120608
  Serious: Yes (Other)
  Sender: FDA-Public Use
  Company Number: US-TEVA-327773USA

PATIENT
  Age: 60 Year
  Sex: Female

DRUGS (3)
  1. LEUCOVORIN CALCIUM [Concomitant]
     Indication: COLON CANCER STAGE III
     Route: 065
  2. OXALIPLATIN [Concomitant]
     Indication: COLON CANCER STAGE III
     Route: 065
  3. FLUOROURACIL [Suspect]
     Indication: COLON CANCER STAGE III
     Route: 065

REACTIONS (9)
  - LIMB DISCOMFORT [None]
  - ELECTROCARDIOGRAM PR SHORTENED [None]
  - HYPOKINESIA [None]
  - ELECTROCARDIOGRAM T WAVE AMPLITUDE DECREASED [None]
  - CHEST DISCOMFORT [None]
  - STRESS CARDIOMYOPATHY [None]
  - ELECTROCARDIOGRAM ST SEGMENT ELEVATION [None]
  - PAIN IN JAW [None]
  - TACHYCARDIA [None]
